FAERS Safety Report 22126094 (Version 1)
Quarter: 2023Q1

REPORT INFORMATION
  Report Type: Spontaneous
  Country: US (occurrence: US)
  Receive Date: 20230322
  Receipt Date: 20230322
  Transmission Date: 20230417
  Serious: No
  Sender: FDA-Public Use
  Company Number: US-ALLERGAN-2220554US

PATIENT
  Age: 79 Year
  Sex: Male

DRUGS (2)
  1. LUMIGAN [Suspect]
     Active Substance: BIMATOPROST
     Indication: Glaucoma
     Dosage: UNK
     Route: 047
  2. LUMIGAN [Suspect]
     Active Substance: BIMATOPROST
     Dosage: UNK
     Route: 047
     Dates: start: 202204

REACTIONS (6)
  - Eye irritation [Not Recovered/Not Resolved]
  - Headache [Not Recovered/Not Resolved]
  - Vision blurred [Not Recovered/Not Resolved]
  - Eye pain [Not Recovered/Not Resolved]
  - Foreign body sensation in eyes [Not Recovered/Not Resolved]
  - Product quality issue [Unknown]

NARRATIVE: CASE EVENT DATE: 20220401
